FAERS Safety Report 6587844-5 (Version None)
Quarter: 2010Q1

REPORT INFORMATION
  Report Type: 
  Country: None (occurrence: None)
  Receive Date: 20100218
  Receipt Date: 20100209
  Transmission Date: 20100710
  Serious: Yes (Other)
  Sender: FDA-Public Use
  Company Number: US-MYLANLABS-2010S1002071

PATIENT
  Age: 16 Year
  Sex: Female

DRUGS (5)
  1. CLARAVIS [Suspect]
     Indication: ACNE
     Route: 048
     Dates: start: 20091207, end: 20090131
  2. CLARAVIS [Suspect]
     Route: 048
     Dates: start: 20100201, end: 20100208
  3. CLARAVIS [Suspect]
  4. AMNESTEEM [Suspect]
     Indication: ACNE
     Route: 048
     Dates: start: 20091207, end: 20090131
  5. AMNESTEEM [Suspect]
     Route: 048
     Dates: start: 20100201, end: 20100208

REACTIONS (2)
  - AGGRESSION [None]
  - SUICIDAL IDEATION [None]
